FAERS Safety Report 17004195 (Version 3)
Quarter: 2019Q4

REPORT INFORMATION
  Report Type: Report from Study
  Country: ES (occurrence: ES)
  Receive Date: 20191107
  Receipt Date: 20191216
  Transmission Date: 20200122
  Serious: Yes (Hospitalization)
  Sender: FDA-Public Use
  Company Number: ES-PFIZER INC-2019478886

PATIENT
  Age: 73 Year
  Sex: Male
  Weight: 82 kg

DRUGS (11)
  1. AVELUMAB [Suspect]
     Active Substance: AVELUMAB
     Indication: GASTROOESOPHAGEAL CANCER
     Dosage: 10 MG/KG, CYCLIC (ONCE EVERY 2 WEEKS)
     Route: 042
     Dates: start: 20190829, end: 20191010
  2. OXALIPLATIN. [Suspect]
     Active Substance: OXALIPLATIN
     Indication: GASTROOESOPHAGEAL CANCER
     Dosage: 85 MG/M2, CYCLIC (ONCE EVERY 2 WEEKS)
     Route: 042
     Dates: start: 20190829, end: 20191010
  3. ADIRO [Concomitant]
     Active Substance: ASPIRIN
     Indication: ISCHAEMIC CARDIOMYOPATHY
     Dosage: EVERY 124 HOURS
  4. LEUCOVORIN CALCIUM. [Suspect]
     Active Substance: LEUCOVORIN CALCIUM
     Indication: GASTROOESOPHAGEAL CANCER
     Dosage: 200 MG/M2, CYCLIC (ONCE EVERY 2 WEEKS)
     Route: 042
     Dates: start: 20190829, end: 20191010
  5. DOCETAXEL. [Suspect]
     Active Substance: DOCETAXEL
     Indication: GASTROOESOPHAGEAL CANCER
     Dosage: 50 MG/M2, CYCLIC (ONCE EVERY 2 WEEKS)
     Route: 042
     Dates: start: 20190829, end: 20191010
  6. 5-FLUOROURACIL [FLUOROURACIL] [Suspect]
     Active Substance: FLUOROURACIL
     Indication: GASTROOESOPHAGEAL CANCER
     Dosage: 2500 MG/M2, CYCLIC (ONCE EVERY 2 WEEKS)
     Route: 042
     Dates: start: 20190829, end: 20191010
  7. METFORMIN [Concomitant]
     Active Substance: METFORMIN HYDROCHLORIDE
     Indication: DIABETES MELLITUS
     Dosage: 850 MG, 3X/DAY (ONCE IN EVERY 8 HOURS)
  8. SIMVASTATIN. [Concomitant]
     Active Substance: SIMVASTATIN
     Indication: DYSLIPIDAEMIA
     Dosage: 20 MG, 1X/DAY (EVERY 24 HOURS)
  9. HUMAN INSULINK [Concomitant]
     Active Substance: INSULIN HUMAN
     Indication: DIABETES MELLITUS
     Dosage: 26 UNITS, UNK
  10. HUMAN INSULINK [Concomitant]
     Active Substance: INSULIN HUMAN
     Dosage: 8 UNITS, UNK
  11. SIMVASTATIN. [Concomitant]
     Active Substance: SIMVASTATIN
     Indication: HYPERTRIGLYCERIDAEMIA

REACTIONS (1)
  - Pneumonia [Recovered/Resolved]

NARRATIVE: CASE EVENT DATE: 20191018
